FAERS Safety Report 15882809 (Version 1)
Quarter: 2019Q1

REPORT INFORMATION
  Report Type: Spontaneous
  Country: GB (occurrence: GB)
  Receive Date: 20190129
  Receipt Date: 20190129
  Transmission Date: 20190417
  Serious: Yes (Hospitalization)
  Sender: FDA-Public Use
  Company Number: GB-CONCORDIA PHARMACEUTICALS INC.-E2B_00018393

PATIENT
  Age: 80 Year

DRUGS (2)
  1. DIGOXIN. [Suspect]
     Active Substance: DIGOXIN
  2. AMIODARONE [Suspect]
     Active Substance: AMIODARONE

REACTIONS (3)
  - Toxicity to various agents [Unknown]
  - Labelled drug-drug interaction medication error [Unknown]
  - Acute kidney injury [Unknown]
